FAERS Safety Report 6658189-X (Version None)
Quarter: 2010Q1

REPORT INFORMATION
  Report Type: 
  Country: None (occurrence: None)
  Receive Date: 20100330
  Receipt Date: 20100324
  Transmission Date: 20100710
  Serious: Yes (Other)
  Sender: FDA-Public Use
  Company Number: B0643849A

PATIENT
  Age: 73 Year
  Sex: Female

DRUGS (3)
  1. ZOVIRAX [Suspect]
     Indication: DRUG USE FOR UNKNOWN INDICATION
     Dosage: 600MG THREE TIMES PER DAY
     Route: 042
     Dates: start: 20091211, end: 20091214
  2. CLAMOXYL IV [Suspect]
     Indication: DRUG USE FOR UNKNOWN INDICATION
     Dosage: 2G SIX TIMES PER DAY
     Route: 042
     Dates: start: 20091211, end: 20091215
  3. ROCEPHIN [Concomitant]
     Indication: DRUG USE FOR UNKNOWN INDICATION
     Route: 042
     Dates: start: 20091211, end: 20091211

REACTIONS (3)
  - BLOOD CREATININE INCREASED [None]
  - RENAL FAILURE ACUTE [None]
  - RENAL IMPAIRMENT [None]
